FAERS Safety Report 10464395 (Version 2)
Quarter: 2014Q4

REPORT INFORMATION
  Report Type: Spontaneous
  Country: TW (occurrence: TW)
  Receive Date: 20140919
  Receipt Date: 20141003
  Transmission Date: 20150528
  Serious: Yes (Death, Hospitalization)
  Sender: FDA-Public Use
  Company Number: TW-PFIZER INC-2014256392

PATIENT
  Age: 58 Year
  Sex: Male

DRUGS (24)
  1. SUTENT [Suspect]
     Active Substance: SUNITINIB MALATE
     Indication: RENAL CELL CARCINOMA
     Dosage: 50 MG PER DAY, TWO WEEKS ON AND ONE WEEK OFF
     Route: 048
     Dates: start: 20140822, end: 20140915
  2. SENNA [Concomitant]
     Active Substance: SENNA LEAF\SENNOSIDES\SENNOSIDES A AND B
     Dosage: 15 MG, UNK
     Dates: start: 20140905, end: 20140906
  3. METOCLOPRAMIDE. [Concomitant]
     Active Substance: METOCLOPRAMIDE
     Dosage: 10NG/2ML
     Route: 042
     Dates: start: 20140914, end: 20140915
  4. SODIUM CHLORIDE. [Concomitant]
     Active Substance: SODIUM CHLORIDE
     Dosage: 500 ML, 0.9%
     Route: 042
     Dates: start: 20140907, end: 20140908
  5. DIMETHICONE. [Concomitant]
     Active Substance: DIMETHICONE
     Dosage: 40 MG, 3X/DAY
     Dates: start: 20140909, end: 20140912
  6. ACETYLCYSTEINE. [Concomitant]
     Active Substance: ACETYLCYSTEINE
     Dosage: 200 MG, 2X/DAY
     Dates: start: 20140904, end: 20140909
  7. TAZOCIN [Concomitant]
     Active Substance: PIPERACILLIN SODIUM\TAZOBACTAM SODIUM
     Dosage: 2.25 G, UNK
     Route: 042
     Dates: start: 20140913, end: 20140914
  8. SODIUM CHLORIDE. [Concomitant]
     Active Substance: SODIUM CHLORIDE
     Dosage: 250 ML, 0.9%
     Route: 042
     Dates: start: 20140908, end: 20140909
  9. IMETIDE [Concomitant]
     Dosage: 300 MG, UNK
     Dates: start: 20140907, end: 20140908
  10. DIMETHICONE. [Concomitant]
     Active Substance: DIMETHICONE
     Dosage: 40 MG, UNK
     Dates: start: 20140913, end: 20140914
  11. NAPROXEN. [Concomitant]
     Active Substance: NAPROXEN
     Dosage: 250 MG, UNK
     Dates: start: 20140911, end: 20140912
  12. SODIUM CHLORIDE. [Concomitant]
     Active Substance: SODIUM CHLORIDE
     Dosage: 500 ML, 0.9%
     Route: 042
     Dates: start: 20140909, end: 20140910
  13. SODIUM CHLORIDE. [Concomitant]
     Active Substance: SODIUM CHLORIDE
     Dosage: 500 ML, 1X/DAY, 0.9%
     Route: 042
     Dates: start: 20140911, end: 20140913
  14. SODIUM CHLORIDE. [Concomitant]
     Active Substance: SODIUM CHLORIDE
     Dosage: 500 ML, 3%
     Dates: start: 20140912, end: 20140913
  15. SODIUM BICARBONATE. [Concomitant]
     Active Substance: SODIUM BICARBONATE
     Dosage: 90 ML, 7%
     Route: 042
     Dates: start: 20140904, end: 20140905
  16. CALCIUM POLYSTYRENE SULFONATE [Concomitant]
     Active Substance: CALCIUM POLYSTYRENE SULFONATE
     Dosage: 5 MG, 3X/DAY
     Dates: start: 20140911, end: 20140913
  17. SODIUM CHLORIDE. [Concomitant]
     Active Substance: SODIUM CHLORIDE
     Dosage: 500 ML, 0.9%
     Route: 042
     Dates: start: 20140901, end: 20140902
  18. SODIUM CHLORIDE. [Concomitant]
     Active Substance: SODIUM CHLORIDE
     Dosage: 410 ML, 0.9%
     Route: 042
     Dates: start: 20140904, end: 20140905
  19. CHLORPHENIRAMINE [Concomitant]
     Active Substance: CHLORPHENIRAMINE
     Dosage: 5 MG/ML
     Dates: start: 20140912, end: 20140913
  20. CHLORPHENIRAMINE [Concomitant]
     Active Substance: CHLORPHENIRAMINE
     Dosage: 5 MG/ML
     Route: 042
     Dates: start: 20140907, end: 20140908
  21. CIPROFLOXACIN. [Concomitant]
     Active Substance: CIPROFLOXACIN
     Dosage: 400 MG, UNK
     Dates: start: 20140901, end: 20140902
  22. CIPROFLOXACIN. [Concomitant]
     Active Substance: CIPROFLOXACIN
     Dosage: 400MG/200MG
     Dates: start: 20140909, end: 20140910
  23. SODIUM CHLORIDE. [Concomitant]
     Active Substance: SODIUM CHLORIDE
     Dosage: 300 ML, 3%
     Route: 042
     Dates: start: 20140906, end: 20140907
  24. LASIX [Concomitant]
     Active Substance: FUROSEMIDE
     Dosage: 20MG/2ML
     Dates: start: 20140907, end: 20140908

REACTIONS (3)
  - Disease progression [Fatal]
  - Dyspnoea [Unknown]
  - Renal cell carcinoma [Fatal]

NARRATIVE: CASE EVENT DATE: 20140901
